FAERS Safety Report 6173171-7 (Version None)
Quarter: 2009Q2

REPORT INFORMATION
  Report Type: 
  Country: None (occurrence: None)
  Receive Date: 20090430
  Receipt Date: 20090417
  Transmission Date: 20091009
  Serious: Yes (Other)
  Sender: FDA-Public Use
  Company Number: DE-PFIZER INC-2009200157

PATIENT

DRUGS (2)
  1. LYRICA [Suspect]
     Route: 048
  2. OXYCODONE [Concomitant]

REACTIONS (2)
  - DIZZINESS [None]
  - RESPIRATORY DEPRESSION [None]
